FAERS Safety Report 4438110-5 (Version None)
Quarter: 2004Q3

REPORT INFORMATION
  Report Type: 
  Country: None (occurrence: None)
  Receive Date: 20040831
  Receipt Date: 20040524
  Transmission Date: 20050211
  Serious: No
  Sender: FDA-Public Use
  Company Number: US-GLAXOSMITHKLINE-A0511898A

PATIENT
  Age: 56 Year
  Sex: Female

DRUGS (7)
  1. WELLBUTRIN XL [Suspect]
     Indication: DEPRESSION
     Route: 048
     Dates: start: 20040101
  2. PROZAC [Concomitant]
  3. LIPITOR [Concomitant]
  4. NORVASC [Concomitant]
  5. MULTIVITAMIN [Concomitant]
  6. WATER PILL [Concomitant]
  7. WELLBUTRIN SR [Concomitant]

REACTIONS (1)
  - MOUTH ULCERATION [None]
